FAERS Safety Report 12915878 (Version 2)
Quarter: 2016Q4

REPORT INFORMATION
  Report Type: Spontaneous
  Country: SE (occurrence: SE)
  Receive Date: 20161107
  Receipt Date: 20161126
  Transmission Date: 20170207
  Serious: Yes (Disabling)
  Sender: FDA-Public Use
  Company Number: SE-AMGEN-SWESP2016140910

PATIENT
  Age: 67 Year
  Sex: Male
  Weight: 100 kg

DRUGS (3)
  1. DICLOFENAC [Suspect]
     Active Substance: DICLOFENAC
     Indication: PRODUCT USED FOR UNKNOWN INDICATION
     Dosage: UNK
     Route: 065
  2. VECTIBIX [Suspect]
     Active Substance: PANITUMUMAB
     Dosage: UNK
     Route: 042
     Dates: start: 2016
  3. VECTIBIX [Suspect]
     Active Substance: PANITUMUMAB
     Indication: COLORECTAL CANCER METASTATIC
     Dosage: UNK, CYCLICAL (4 CYCLES)
     Route: 042
     Dates: start: 20160714, end: 20160915

REACTIONS (2)
  - Skin reaction [Recovered/Resolved]
  - Herpes virus infection [Recovered/Resolved]

NARRATIVE: CASE EVENT DATE: 20160920
